APPROVED DRUG PRODUCT: THEOPHYLLINE
Active Ingredient: THEOPHYLLINE
Strength: 80MG/15ML
Dosage Form/Route: SOLUTION;ORAL
Application: A087449 | Product #001
Applicant: ROXANE LABORATORIES INC
Approved: Sep 15, 1983 | RLD: Yes | RS: No | Type: DISCN